FAERS Safety Report 9245230 (Version 1)
Quarter: 2013Q1

REPORT INFORMATION
  Report Type: Spontaneous
  Country: US (occurrence: None)
  Receive Date: 20121130
  Receipt Date: 20121130
  Transmission Date: 20140127
  Serious: Yes (Hospitalization, Other)
  Sender: FDA-Public Use
  Company Number: 338553

PATIENT
  Age: 86 Year
  Sex: Female

DRUGS (1)
  1. NOVOLOG FLEXPEN [Suspect]
     Indication: DIABETES MELLITUS
     Route: 058

REACTIONS (2)
  - Incorrect dose administered [None]
  - Hypoglycaemic unconsciousness [None]
